FAERS Safety Report 15093716 (Version 12)
Quarter: 2019Q1

REPORT INFORMATION
  Report Type: Report from Study
  Country: US (occurrence: US)
  Receive Date: 20180629
  Receipt Date: 20190205
  Transmission Date: 20190417
  Serious: Yes (Hospitalization)
  Sender: FDA-Public Use
  Company Number: US-ACTELION-A-NJ2016-130954

PATIENT
  Age: 75 Year
  Sex: Female
  Weight: 83.9 kg

DRUGS (8)
  1. ADCIRCA [Concomitant]
     Active Substance: TADALAFIL
  2. OPSUMIT [Suspect]
     Active Substance: MACITENTAN
     Indication: PULMONARY ARTERIAL HYPERTENSION
     Dosage: 10 MG, QD
     Route: 048
     Dates: start: 20160112
  3. REMODULIN [Suspect]
     Active Substance: TREPROSTINIL
     Indication: PRODUCT USED FOR UNKNOWN INDICATION
     Dosage: 16 NG/KG, PER MIN
     Route: 058
     Dates: start: 201806
  4. INFLUENZA VACCINE [Concomitant]
     Active Substance: INFLUENZA VIRUS VACCINE
  5. ORENITRAM [Suspect]
     Active Substance: TREPROSTINIL
     Indication: PRODUCT USED FOR UNKNOWN INDICATION
     Dosage: UNK, TID
     Route: 065
     Dates: end: 201806
  6. ADEMPAS [Concomitant]
     Active Substance: RIOCIGUAT
  7. REMODULIN [Suspect]
     Active Substance: TREPROSTINIL
     Dosage: UNK
     Route: 058
  8. OPSUMIT [Suspect]
     Active Substance: MACITENTAN
     Dosage: 10 MG, QD
     Route: 048

REACTIONS (63)
  - Headache [Unknown]
  - Dysgeusia [Unknown]
  - Nasal dryness [Unknown]
  - Pain in extremity [Unknown]
  - Hot flush [Unknown]
  - Infusion site swelling [Not Recovered/Not Resolved]
  - Abdominal infection [Unknown]
  - Erythema [Unknown]
  - Nasal congestion [Unknown]
  - Asthenia [Unknown]
  - Unevaluable event [Unknown]
  - Fatigue [Unknown]
  - Diarrhoea [Unknown]
  - Dyspnoea exertional [Recovering/Resolving]
  - Device dislocation [Recovered/Resolved]
  - Infusion site erythema [Not Recovered/Not Resolved]
  - Infusion site pain [Not Recovered/Not Resolved]
  - Infusion site induration [Not Recovered/Not Resolved]
  - Oxygen saturation decreased [Recovering/Resolving]
  - Heart rate increased [Recovering/Resolving]
  - Therapy change [Unknown]
  - Eye disorder [Unknown]
  - Dry throat [Unknown]
  - Abdominal pain upper [Unknown]
  - Loss of personal independence in daily activities [Unknown]
  - Chest discomfort [Unknown]
  - Varicose vein [Unknown]
  - Pulmonary oedema [Unknown]
  - Nasopharyngitis [Unknown]
  - Arthralgia [Unknown]
  - Cough [Unknown]
  - Neck pain [Unknown]
  - Anaemia [Unknown]
  - Cardiac pacemaker insertion [Unknown]
  - Oropharyngeal pain [Unknown]
  - Dyspepsia [Unknown]
  - Oxygen consumption increased [Unknown]
  - Ingrowing nail [Unknown]
  - Asthenopia [Unknown]
  - Muscle spasms [Unknown]
  - Catheter management [Unknown]
  - Infusion site infection [Unknown]
  - Back pain [Unknown]
  - Oedema peripheral [Unknown]
  - Blood iron decreased [Unknown]
  - Constipation [Unknown]
  - Onychomycosis [Unknown]
  - Hypoaesthesia [Unknown]
  - Feeling of body temperature change [Unknown]
  - Syncope [Unknown]
  - Flushing [Unknown]
  - Cardiac disorder [Unknown]
  - Lung disorder [Unknown]
  - Surgery [Unknown]
  - Dyspnoea [Unknown]
  - Poor peripheral circulation [Unknown]
  - Urinary tract infection [Unknown]
  - Bladder disorder [Unknown]
  - Abdominal distension [Unknown]
  - Dizziness [Unknown]
  - Swelling [Unknown]
  - Respiratory rate increased [Unknown]
  - Hypotension [Recovering/Resolving]

NARRATIVE: CASE EVENT DATE: 20160907
